FAERS Safety Report 8590317-1 (Version None)
Quarter: 2012Q3

REPORT INFORMATION
  Report Type: 
  Country: None (occurrence: None)
  Receive Date: 20120813
  Receipt Date: 20120806
  Transmission Date: 20120928
  Serious: Yes (Hospitalization)
  Sender: FDA-Public Use
  Company Number: JP-GLAXOSMITHKLINE-B0821895A

PATIENT
  Age: 53 Year
  Sex: Female

DRUGS (1)
  1. REVOLADE [Suspect]
     Route: 048

REACTIONS (10)
  - THROMBOTIC MICROANGIOPATHY [None]
  - BETA-N-ACETYL-D-GLUCOSAMINIDASE INCREASED [None]
  - BLOOD CREATININE INCREASED [None]
  - BETA 2 MICROGLOBULIN URINE INCREASED [None]
  - POSTERIOR REVERSIBLE ENCEPHALOPATHY SYNDROME [None]
  - RENAL DISORDER [None]
  - CONVULSION [None]
  - TUBULOINTERSTITIAL NEPHRITIS [None]
  - ANGIOGRAM ABNORMAL [None]
  - OLIGURIA [None]
